FAERS Safety Report 24300279 (Version 1)
Quarter: 2024Q3

REPORT INFORMATION
  Report Type: Report from Study
  Country: CO (occurrence: CO)
  Receive Date: 20240909
  Receipt Date: 20240909
  Transmission Date: 20241016
  Serious: Yes (Other)
  Sender: ABBVIE
  Company Number: CO-ABBVIE-5913626

PATIENT
  Age: 60 Year
  Sex: Female
  Weight: 78 kg

DRUGS (3)
  1. RINVOQ [Suspect]
     Active Substance: UPADACITINIB
     Indication: Rheumatoid arthritis
     Dosage: FORM STRENGTH:15 MILLIGRAM
     Route: 048
     Dates: start: 20220725
  2. SOPHIPREN [Concomitant]
     Indication: Surgery
     Dosage: 1 DROP IN THE RIGHT EYE EVERY 2 HOURS FOR ONE WEEK, THE SECOND WEEK 1 DROP IN THE RIGHT EYE EVERY...
     Route: 047
     Dates: start: 20240829
  3. Landax [Concomitant]
     Indication: Surgery
     Dosage: 1 DROP FORM STRENGTH: 0.5 PERCENT
     Route: 047
     Dates: start: 20240829

REACTIONS (3)
  - Cataract [Recovering/Resolving]
  - Visual impairment [Unknown]
  - Eye pruritus [Unknown]

NARRATIVE: CASE EVENT DATE: 20230101
